FAERS Safety Report 7419082-8 (Version None)
Quarter: 2011Q2

REPORT INFORMATION
  Report Type: 
  Country: None (occurrence: None)
  Receive Date: 20110415
  Receipt Date: 20110406
  Transmission Date: 20111010
  Serious: Yes (Hospitalization)
  Sender: FDA-Public Use
  Company Number: FR-PFIZER INC-2011075889

PATIENT
  Age: 84 Year
  Sex: Female

DRUGS (10)
  1. LEVOTHYROX [Concomitant]
     Dosage: UNK
  2. PARIET [Concomitant]
     Dosage: UNK
  3. KARDEGIC [Concomitant]
     Dosage: UNK
  4. BURINEX [Suspect]
     Dosage: UNK
     Route: 048
     Dates: end: 20110117
  5. HYPERIUM [Concomitant]
     Dosage: UNK
  6. TEGRETOL [Concomitant]
     Dosage: UNK
  7. LAROXYL [Suspect]
     Dosage: UNK
     Route: 048
     Dates: start: 20110102, end: 20110105
  8. LAROXYL [Suspect]
     Dosage: UNK
     Route: 048
     Dates: start: 20110106, end: 20110117
  9. LYRICA [Suspect]
     Dosage: UNK
     Route: 048
  10. FLECAINE [Concomitant]
     Dosage: UNK

REACTIONS (3)
  - URINARY RETENTION [None]
  - RENAL FAILURE ACUTE [None]
  - CONFUSIONAL STATE [None]
